FAERS Safety Report 9644881 (Version 2)
Quarter: 2013Q4

REPORT INFORMATION
  Report Type: Spontaneous
  Country: BR (occurrence: BR)
  Receive Date: 20131025
  Receipt Date: 20131025
  Transmission Date: 20140711
  Serious: Yes (Other)
  Sender: FDA-Public Use
  Company Number: PHHY2013BR062380

PATIENT
  Age: 10 Year
  Sex: Male

DRUGS (1)
  1. RITALIN LA [Suspect]
     Indication: PSYCHOMOTOR HYPERACTIVITY
     Dosage: 1 DF, DAILY
     Route: 048

REACTIONS (4)
  - Abnormal behaviour [Not Recovered/Not Resolved]
  - Agitation [Not Recovered/Not Resolved]
  - Mania [Not Recovered/Not Resolved]
  - Learning disability [Not Recovered/Not Resolved]
